FAERS Safety Report 9305997 (Version 1)
Quarter: 2013Q2

REPORT INFORMATION
  Report Type: Spontaneous
  Country: SE (occurrence: SE)
  Receive Date: 20130523
  Receipt Date: 20130523
  Transmission Date: 20140414
  Serious: Yes (Death, Hospitalization)
  Sender: FDA-Public Use
  Company Number: PHHY2013SE051480

PATIENT
  Age: 84 Year
  Sex: Male

DRUGS (4)
  1. CIPROFLOXACIN [Suspect]
     Indication: INFECTION
     Dosage: 750 MG, BID
     Route: 048
     Dates: start: 20110428, end: 20110603
  2. ALVEDON [Concomitant]
     Dosage: 500 MG, UNK
  3. KAVEPENIN [Concomitant]
     Dosage: 125 MG, UNK
  4. TROMBYL [Concomitant]
     Dosage: 75 MG, UNK

REACTIONS (30)
  - Cardiac arrest [Fatal]
  - Anxiety [Fatal]
  - Decreased appetite [Fatal]
  - Blood urine present [Fatal]
  - Confusional state [Fatal]
  - Cough [Fatal]
  - Muscle spasms [Fatal]
  - Depression [Fatal]
  - Dizziness [Fatal]
  - Dyspnoea [Fatal]
  - Syncope [Fatal]
  - Gait disturbance [Fatal]
  - Hallucination [Fatal]
  - Headache [Fatal]
  - Psychomotor hyperactivity [Fatal]
  - Irritability [Fatal]
  - Renal failure acute [Fatal]
  - Hypotension [Fatal]
  - Muscle twitching [Fatal]
  - Muscular weakness [Fatal]
  - Nausea [Fatal]
  - Nightmare [Fatal]
  - Oedema [Fatal]
  - Palpitations [Fatal]
  - Psychotic disorder [Fatal]
  - Heart rate increased [Fatal]
  - Tremor [Fatal]
  - Sleep disorder [Fatal]
  - Fatigue [Fatal]
  - Ocular icterus [Fatal]
